FAERS Safety Report 7860307-2 (Version None)
Quarter: 2011Q4

REPORT INFORMATION
  Report Type: 
  Country: None (occurrence: None)
  Receive Date: 20111027
  Receipt Date: 20111018
  Transmission Date: 20120403
  Serious: Yes (Hospitalization)
  Sender: FDA-Public Use
  Company Number: JP-SHIRE-SPV1-2008-02179

PATIENT

DRUGS (6)
  1. HYDROXYZINE HYDROCHLORIDE [Concomitant]
     Indication: PROPHYLAXIS
     Dosage: 1 DF, UNK
     Dates: start: 20081014
  2. LISINOPRIL [Concomitant]
     Indication: MUCOPOLYSACCHARIDOSIS II
     Dosage: 10 MG, 1X/DAY:QD
     Dates: start: 20050907
  3. HYDROXYZINE HYDROCHLORIDE [Concomitant]
     Dosage: 1 DF, UNK
     Dates: start: 20080421, end: 20080623
  4. IDURSULFASE [Suspect]
     Indication: MUCOPOLYSACCHARIDOSIS II
     Dosage: 24 MG, 1X/WEEK
     Route: 041
     Dates: start: 20070629
  5. HYDROXYZINE HYDROCHLORIDE [Concomitant]
     Dosage: 1 DF, UNK
     Dates: start: 20080714, end: 20080929
  6. HYDROXYZINE HYDROCHLORIDE [Concomitant]
     Dosage: 2 DF, UNK
     Dates: start: 20080707, end: 20080707

REACTIONS (5)
  - PRURITUS [None]
  - INFUSION RELATED REACTION [None]
  - DYSPNOEA [None]
  - URTICARIA [None]
  - PHARYNGITIS [None]
